FAERS Safety Report 11567667 (Version 1)
Quarter: 2015Q3

REPORT INFORMATION
  Report Type: Spontaneous
  Country: US (occurrence: US)
  Receive Date: 20150929
  Receipt Date: 20150929
  Transmission Date: 20151125
  Serious: No
  Sender: FDA-Public Use
  Company Number: US-ASTRAZENECA-2015SE93342

PATIENT
  Age: 89 Year
  Sex: Female

DRUGS (2)
  1. MOVANTIK [Suspect]
     Active Substance: NALOXEGOL OXALATE
     Indication: CONSTIPATION
     Route: 048
  2. OXYCODONE [Concomitant]
     Active Substance: OXYCODONE
     Route: 048

REACTIONS (7)
  - Irritable bowel syndrome [Unknown]
  - Dizziness [Unknown]
  - Diverticulitis [Unknown]
  - Hypokinesia [Unknown]
  - Fatigue [Unknown]
  - Feeding disorder [Unknown]
  - Nausea [Unknown]
